FAERS Safety Report 9703238 (Version 1)
Quarter: 2013Q4

REPORT INFORMATION
  Report Type: Spontaneous
  Country: FR (occurrence: FR)
  Receive Date: 20131122
  Receipt Date: 20131122
  Transmission Date: 20140711
  Serious: Yes (Hospitalization, Other)
  Sender: FDA-Public Use
  Company Number: FR-JNJFOC-20131110916

PATIENT
  Age: 61 Year
  Sex: Female

DRUGS (10)
  1. XARELTO [Suspect]
     Indication: EMBOLISM VENOUS
     Route: 048
     Dates: start: 20130919, end: 20130921
  2. XARELTO [Suspect]
     Indication: THROMBOSIS PROPHYLAXIS
     Route: 048
     Dates: start: 20130919, end: 20130921
  3. EXACYL [Suspect]
     Indication: POST PROCEDURAL HAEMORRHAGE
     Route: 042
     Dates: start: 20130918, end: 20130918
  4. LOVENOX [Suspect]
     Indication: THROMBOSIS PROPHYLAXIS
     Route: 065
     Dates: start: 20130918, end: 20130918
  5. PROZAC [Concomitant]
     Indication: DEPRESSION
     Route: 048
  6. LYSANXIA [Concomitant]
     Indication: DEPRESSION
     Route: 048
  7. ABUFENE [Concomitant]
     Route: 048
  8. LEVOTHYROX [Concomitant]
     Indication: HYPOTHYROIDISM
     Route: 048
  9. TELMISARTAN HYDROCHLOROTHIAZIDE [Concomitant]
     Indication: HYPERTENSION
     Route: 048
  10. CRESTOR [Concomitant]
     Indication: DYSLIPIDAEMIA
     Route: 048

REACTIONS (2)
  - Deep vein thrombosis [Recovering/Resolving]
  - Drug ineffective [Unknown]
